FAERS Safety Report 9229314 (Version 1)
Quarter: 2013Q2

REPORT INFORMATION
  Report Type: Spontaneous
  Country: US (occurrence: US)
  Receive Date: 20130412
  Receipt Date: 20130412
  Transmission Date: 20140414
  Serious: Yes (Other)
  Sender: FDA-Public Use
  Company Number: US-ASTELLAS-2013US003067

PATIENT
  Age: 51 Year
  Sex: Male

DRUGS (2)
  1. PROGRAF [Suspect]
     Indication: RENAL TRANSPLANT
     Dosage: 0.5 MG, UID/QD
     Route: 048
     Dates: start: 20130311
  2. PROGRAF [Suspect]
     Dosage: 3 MG, BID
     Route: 048
     Dates: start: 20130311

REACTIONS (3)
  - Drug ineffective [Unknown]
  - Pancreas transplant rejection [Unknown]
  - Kidney transplant rejection [Unknown]
